FAERS Safety Report 19679816 (Version 1)
Quarter: 2021Q3

REPORT INFORMATION
  Report Type: Report from Study
  Country: US (occurrence: US)
  Receive Date: 20210810
  Receipt Date: 20210810
  Transmission Date: 20211014
  Serious: Yes (Hospitalization)
  Sender: FDA-Public Use
  Company Number: US-ACCORD-234705

PATIENT
  Sex: Female

DRUGS (2)
  1. GABAPENTIN. [Concomitant]
     Active Substance: GABAPENTIN
     Indication: PRODUCT USED FOR UNKNOWN INDICATION
  2. CLOZAPINE ACCORD [Suspect]
     Active Substance: CLOZAPINE
     Indication: SCHIZOPHRENIA
     Dosage: STRENGTH: 100MG, 5 TIMES DAILY
     Route: 048

REACTIONS (7)
  - Sleep apnoea syndrome [Unknown]
  - Product dose omission issue [Unknown]
  - Agitation [Unknown]
  - Feeling abnormal [Unknown]
  - Fall [Unknown]
  - Sitting disability [Unknown]
  - Ankle fracture [Unknown]
